FAERS Safety Report 4878041-X (Version None)
Quarter: 2006Q1

REPORT INFORMATION
  Report Type: 
  Country: None (occurrence: None)
  Receive Date: 20060110
  Receipt Date: 20051228
  Transmission Date: 20060701
  Serious: Yes (Life-Threatening, Hospitalization)
  Sender: FDA-Public Use
  Company Number: 2006000265

PATIENT
  Age: 45 Year
  Sex: Female
  Weight: 108 kg

DRUGS (3)
  1. FRAGMIN [Suspect]
     Indication: THROMBOSIS PROPHYLAXIS
     Dosage: INTRAVENOUS
     Route: 042
  2. HEPARIN SODIUM [Suspect]
     Indication: THROMBOSIS PROPHYLAXIS
     Dosage: INTRAVENOUS
     Route: 042
  3. UROKINASE            (UROKINASE) [Concomitant]

REACTIONS (5)
  - HEPARIN-INDUCED THROMBOCYTOPENIA [None]
  - PERIPHERAL EMBOLISM [None]
  - POSTOPERATIVE ILEUS [None]
  - PULMONARY ARTERY THROMBOSIS [None]
  - RESPIRATORY FAILURE [None]
